FAERS Safety Report 23160586 (Version 5)
Quarter: 2024Q1

REPORT INFORMATION
  Report Type: Report from Study
  Country: US (occurrence: US)
  Receive Date: 20231108
  Receipt Date: 20240308
  Transmission Date: 20240409
  Serious: No
  Sender: FDA-Public Use
  Company Number: US-ALXN-A202308252AA

PATIENT
  Age: 59 Year
  Sex: Female

DRUGS (1)
  1. STRENSIQ [Suspect]
     Active Substance: ASFOTASE ALFA
     Indication: Hypophosphatasia
     Dosage: UNK
     Route: 058

REACTIONS (19)
  - Pollakiuria [Unknown]
  - Restless legs syndrome [Unknown]
  - Nerve injury [Unknown]
  - Application site discharge [Unknown]
  - Syringe issue [Unknown]
  - Illness [Unknown]
  - Product administration error [Unknown]
  - Myalgia [Unknown]
  - Arthritis [Unknown]
  - Feeling abnormal [Unknown]
  - Incorrect route of product administration [Unknown]
  - Muscle tightness [Unknown]
  - Nausea [Unknown]
  - Injection site discharge [Unknown]
  - Injection site vesicles [Recovered/Resolved]
  - Injection site pain [Unknown]
  - Back pain [Unknown]
  - Musculoskeletal chest pain [Unknown]
  - Pain [Recovered/Resolved]

NARRATIVE: CASE EVENT DATE: 20230623
